FAERS Safety Report 14690370 (Version 1)
Quarter: 2018Q1

REPORT INFORMATION
  Report Type: Spontaneous
  Country: AU (occurrence: AU)
  Receive Date: 20180328
  Receipt Date: 20180328
  Transmission Date: 20180509
  Serious: Yes (Hospitalization)
  Sender: FDA-Public Use
  Company Number: AU-SA-2018SA083018

PATIENT
  Age: 2 Year
  Sex: Female
  Weight: 12 kg

DRUGS (11)
  1. DIPYRIDAMOLE. [Suspect]
     Active Substance: DIPYRIDAMOLE
     Dosage: AT A DOSE OF 200/25 MG
     Route: 048
  2. PERINDOPRIL [Suspect]
     Active Substance: PERINDOPRIL
     Route: 048
  3. AMLODIPINE [Suspect]
     Active Substance: AMLODIPINE BESYLATE
     Route: 048
  4. NEXIUM [Suspect]
     Active Substance: ESOMEPRAZOLE MAGNESIUM
     Route: 048
  5. PANADOL [Suspect]
     Active Substance: ACETAMINOPHEN
     Route: 048
  6. ASPIRIN. [Suspect]
     Active Substance: ASPIRIN
     Dosage: AT A DOSE OF 200/25 MG
     Route: 048
  7. TICAGRELOR. [Suspect]
     Active Substance: TICAGRELOR
     Route: 048
  8. DITROPAN [Suspect]
     Active Substance: OXYBUTYNIN CHLORIDE
     Route: 048
  9. CLOPIDOGREL BISULFATE. [Suspect]
     Active Substance: CLOPIDOGREL BISULFATE
     Route: 048
  10. FUROSEMIDE. [Suspect]
     Active Substance: FUROSEMIDE
     Route: 048
  11. SLOW-K [Suspect]
     Active Substance: POTASSIUM CHLORIDE
     Route: 048

REACTIONS (1)
  - Accidental exposure to product [Unknown]
